FAERS Safety Report 6369208-2 (Version None)
Quarter: 2009Q3

REPORT INFORMATION
  Report Type: 
  Country: None (occurrence: None)
  Receive Date: 20090916
  Receipt Date: 20090908
  Transmission Date: 20100115
  Serious: Yes (Life-Threatening, Hospitalization)
  Sender: FDA-Public Use
  Company Number: ADR20312009

PATIENT
  Age: 40 Year
  Sex: Female

DRUGS (2)
  1. RISPERIDONE [Suspect]
     Indication: DELUSION
     Dosage: 50MG INTRAMUSCULAR
     Route: 030
  2. WARFARIN [Concomitant]

REACTIONS (1)
  - PULMONARY EMBOLISM [None]
